FAERS Safety Report 12243622 (Version 1)
Quarter: 2016Q2

REPORT INFORMATION
  Report Type: Spontaneous
  Country: FR (occurrence: FR)
  Receive Date: 20160406
  Receipt Date: 20160406
  Transmission Date: 20160815
  Serious: Yes (Other)
  Sender: FDA-Public Use
  Company Number: FR-SA-BMS18904599

PATIENT
  Age: 40 Year
  Sex: Female

DRUGS (7)
  1. HYDROCHLOROTHIAZIDE/IRBESARTAN [Suspect]
     Active Substance: HYDROCHLOROTHIAZIDE\IRBESARTAN
     Indication: HYPERTENSION
     Route: 048
     Dates: end: 20121115
  2. LYRICA [Suspect]
     Active Substance: PREGABALIN
     Indication: EPILEPSY
     Route: 048
     Dates: end: 20121115
  3. TAHOR [Suspect]
     Active Substance: ATORVASTATIN CALCIUM
     Indication: DYSLIPIDAEMIA
     Dosage: FILM COATED TABS.
     Route: 048
     Dates: end: 20121115
  4. REVIA [Suspect]
     Active Substance: NALTREXONE HYDROCHLORIDE
     Indication: ALCOHOLISM
     Dosage: FILM COATED TABS.
     Route: 048
     Dates: end: 20121115
  5. LOXEN [Suspect]
     Active Substance: NICARDIPINE HYDROCHLORIDE
     Indication: HYPERTENSION
     Route: 048
     Dates: end: 20121115
  6. ALCOHOL. [Suspect]
     Active Substance: ALCOHOL
     Route: 065
  7. AOTAL [Suspect]
     Active Substance: ACAMPROSATE CALCIUM
     Indication: ALCOHOLISM
     Route: 048

REACTIONS (5)
  - Abortion induced [Unknown]
  - Congenital anomaly in offspring [None]
  - Maternal exposure during pregnancy [Unknown]
  - Pregnancy [None]
  - Alcohol poisoning [Unknown]

NARRATIVE: CASE EVENT DATE: 20121015
